FAERS Safety Report 7224504-1 (Version None)
Quarter: 2011Q1

REPORT INFORMATION
  Report Type: 
  Country: None (occurrence: None)
  Receive Date: 20110113
  Receipt Date: 20110105
  Transmission Date: 20110831
  Serious: Yes (Other)
  Sender: FDA-Public Use
  Company Number: US-PFIZER INC-2011003448

PATIENT
  Sex: Female
  Weight: 95.238 kg

DRUGS (6)
  1. ZONISAMIDE [Concomitant]
     Indication: EPILEPSY
     Dosage: 200 MG, 2X/DAY
  2. CELEXA [Concomitant]
     Dosage: 10 MG, UNK
  3. LYRICA [Suspect]
     Indication: EPILEPSY
     Dosage: 75 MG, 2X/DAY
     Route: 048
     Dates: start: 20101201, end: 20101201
  4. LYRICA [Suspect]
     Dosage: 300 MG, 2X/DAY
     Route: 048
     Dates: start: 20101201, end: 20101231
  5. LYRICA [Suspect]
     Indication: FIBROMYALGIA
     Dosage: 150 MG, 2X/DAY
     Route: 048
     Dates: start: 20101201, end: 20101201
  6. LYRICA [Suspect]
     Dosage: 225 MG, 2X/DAY
     Route: 048
     Dates: start: 20101201, end: 20101201

REACTIONS (7)
  - DYSPNOEA [None]
  - BLISTER [None]
  - HYPERSENSITIVITY [None]
  - DISCOMFORT [None]
  - PRURITUS [None]
  - LIMB DISCOMFORT [None]
  - RASH GENERALISED [None]
